FAERS Safety Report 11030384 (Version 1)
Quarter: 2015Q2

REPORT INFORMATION
  Report Type: Spontaneous
  Country: US (occurrence: None)
  Receive Date: 20150414
  Receipt Date: 20150414
  Transmission Date: 20150821
  Serious: Yes (Hospitalization)
  Sender: FDA-Public Use
  Company Number: None

PATIENT
  Age: 65 Year
  Sex: Female
  Weight: 80.9 kg

DRUGS (3)
  1. CARBOPLATIN. [Suspect]
     Active Substance: CARBOPLATIN
     Dates: end: 20150325
  2. METFORMIN HYDROCHLORIDE. [Suspect]
     Active Substance: METFORMIN HYDROCHLORIDE
     Dates: end: 20150405
  3. TAXOL [Suspect]
     Active Substance: PACLITAXEL
     Dates: end: 20150325

REACTIONS (9)
  - Abdominal pain [None]
  - Faeces discoloured [None]
  - Hypokalaemia [None]
  - White blood cell count decreased [None]
  - Pyrexia [None]
  - Clostridium test positive [None]
  - Rash pruritic [None]
  - Diarrhoea [None]
  - Dyspnoea [None]

NARRATIVE: CASE EVENT DATE: 20150405
